FAERS Safety Report 4590217-8 (Version None)
Quarter: 2005Q1

REPORT INFORMATION
  Report Type: 
  Country: None (occurrence: None)
  Receive Date: 20050224
  Receipt Date: 20050214
  Transmission Date: 20050727
  Serious: Yes (Hospitalization)
  Sender: FDA-Public Use
  Company Number: JP-JNJFOC-20050203806

PATIENT
  Age: 79 Year
  Sex: Female

DRUGS (1)
  1. CRAVIT [Suspect]
     Indication: UPPER RESPIRATORY TRACT INFLAMMATION
     Route: 049
     Dates: start: 20050210, end: 20050212

REACTIONS (1)
  - LOSS OF CONSCIOUSNESS [None]
